FAERS Safety Report 6704536-X (Version None)
Quarter: 2010Q2

REPORT INFORMATION
  Report Type: 
  Country: None (occurrence: None)
  Receive Date: 20100430
  Receipt Date: 20100420
  Transmission Date: 20101027
  Serious: Yes (Hospitalization, Other)
  Sender: FDA-Public Use
  Company Number: PHHY2010JP14051

PATIENT
  Sex: Female

DRUGS (6)
  1. TASIGNA [Suspect]
     Indication: CHRONIC MYELOID LEUKAEMIA
     Dosage: 400MG DAILY
     Route: 048
     Dates: start: 20100115, end: 20100302
  2. STARSIS [Concomitant]
     Dosage: 3DF
     Dates: start: 20100129
  3. ALLOPURINOL [Concomitant]
     Dosage: 100MG
     Route: 048
  4. CELESTAMINE TAB [Concomitant]
     Dosage: 1DF
     Route: 048
  5. LASIX [Concomitant]
     Dosage: 20MG
     Route: 048
  6. MICARDIS [Concomitant]
     Dosage: 40MG
     Route: 048

REACTIONS (6)
  - BLOOD GLUCOSE INCREASED [None]
  - CEREBRAL INFARCTION [None]
  - HYPOAESTHESIA [None]
  - LIVER DISORDER [None]
  - NAUSEA [None]
  - RASH [None]
